FAERS Safety Report 8796747 (Version 1)
Quarter: 2012Q4

REPORT INFORMATION
  Report Type: 
  Country: US (occurrence: US)
  Receive Date: 20120919
  Receipt Date: 20120919
  Transmission Date: 20130627
  Serious: No
  Sender: FDA-Public Use
  Company Number: US-MYLANLABS-2012S1016053

PATIENT
  Age: 87 Year
  Sex: Female

DRUGS (3)
  1. ATENOLOL TABLETS, USP [Suspect]
     Indication: BLOOD PRESSURE INCREASED
     Route: 048
  2. NIFEDIPINE EXTENDED RELEASE [Suspect]
     Indication: BLOOD PRESSURE INCREASED
     Route: 048
     Dates: end: 20110928
  3. PROCARDIA /00340701/ [Suspect]
     Indication: BLOOD PRESSURE INCREASED
     Route: 048
     Dates: start: 201109

REACTIONS (4)
  - Headache [Not Recovered/Not Resolved]
  - Dizziness [Not Recovered/Not Resolved]
  - Melaena [Not Recovered/Not Resolved]
  - Nausea [Not Recovered/Not Resolved]
